FAERS Safety Report 5959936-2 (Version None)
Quarter: 2008Q4

REPORT INFORMATION
  Report Type: 
  Country: None (occurrence: None)
  Receive Date: 20081119
  Receipt Date: 20081119
  Transmission Date: 20090506
  Serious: Yes (Other)
  Sender: FDA-Public Use
  Company Number: None

PATIENT
  Age: 32 Year
  Sex: Female
  Weight: 58.1511 kg

DRUGS (4)
  1. LAMOTRIGINE [Suspect]
     Indication: CONVULSION
     Dosage: 2Q-AM, 3QHS P.O.
     Route: 048
     Dates: start: 20081106, end: 20081114
  2. LAMOTRIGINE [Suspect]
     Indication: CONVULSION
     Dosage: PO - 2 TABS TWICE A DAY
     Route: 048
     Dates: start: 20081106, end: 20081114
  3. TEGRETOL-XR [Concomitant]
  4. FOLIC ACID [Concomitant]

REACTIONS (3)
  - CONDITION AGGRAVATED [None]
  - CONVULSION [None]
  - THERAPEUTIC RESPONSE UNEXPECTED WITH DRUG SUBSTITUTION [None]
